FAERS Safety Report 12997421 (Version 3)
Quarter: 2016Q4

REPORT INFORMATION
  Report Type: Spontaneous
  Country: US (occurrence: US)
  Receive Date: 20161205
  Receipt Date: 20161214
  Transmission Date: 20170207
  Serious: Yes (Other)
  Sender: FDA-Public Use
  Company Number: US-AUROBINDO-AUR-APL-2016-14810

PATIENT
  Age: 64 Year
  Sex: Male

DRUGS (1)
  1. PREDNISONE. [Suspect]
     Active Substance: PREDNISONE
     Indication: CHRONIC OBSTRUCTIVE PULMONARY DISEASE
     Route: 065

REACTIONS (9)
  - Enterocolitis [Recovered/Resolved]
  - Melaena [Recovered/Resolved]
  - Strongyloidiasis [Recovered/Resolved]
  - Gastritis [Recovered/Resolved]
  - Odynophagia [Recovered/Resolved]
  - Duodenitis [Recovered/Resolved]
  - Herpes simplex oesophagitis [Recovered/Resolved]
  - Ulcer [Recovered/Resolved]
  - Haemorrhage [Recovered/Resolved]
